FAERS Safety Report 4267857-9 (Version None)
Quarter: 2004Q1

REPORT INFORMATION
  Report Type: 
  Country: None (occurrence: None)
  Receive Date: 20040107
  Receipt Date: 20031027
  Transmission Date: 20041129
  Serious: Yes (Other)
  Sender: FDA-Public Use
  Company Number: WAES 0310USA02875

PATIENT

DRUGS (1)
  1. DECADRON [Suspect]
     Dosage: PO
     Route: 048

REACTIONS (1)
  - INTESTINAL PERFORATION [None]
